FAERS Safety Report 5429785-2 (Version None)
Quarter: 2007Q3

REPORT INFORMATION
  Report Type: 
  Country: None (occurrence: None)
  Receive Date: 20070829
  Receipt Date: 20070817
  Transmission Date: 20080115
  Serious: Yes (Hospitalization, Other)
  Sender: FDA-Public Use
  Company Number: US-PFIZER INC-2007070021

PATIENT
  Sex: Female
  Weight: 101.81 kg

DRUGS (3)
  1. CHANTIX [Suspect]
     Indication: SMOKING CESSATION THERAPY
     Dates: start: 20070601, end: 20070813
  2. PRILOSEC [Concomitant]
  3. LEXAPRO [Concomitant]

REACTIONS (2)
  - CHEST PAIN [None]
  - GASTROINTESTINAL INFECTION [None]
